FAERS Safety Report 7226365-3 (Version None)
Quarter: 2011Q1

REPORT INFORMATION
  Report Type: 
  Country: None (occurrence: None)
  Receive Date: 20110114
  Receipt Date: 20110110
  Transmission Date: 20110831
  Serious: Yes (Other)
  Sender: FDA-Public Use
  Company Number: CHPA2011US00867

PATIENT
  Age: 66 Year
  Sex: Female

DRUGS (1)
  1. EXCEDRIN TENSION HEADACHE [Suspect]
     Indication: HEADACHE
     Dosage: UNK , UNK
     Route: 048

REACTIONS (1)
  - DRUG DEPENDENCE [None]
